FAERS Safety Report 14200137 (Version 1)
Quarter: 2017Q4

REPORT INFORMATION
  Report Type: Spontaneous
  Country: US (occurrence: US)
  Receive Date: 20171117
  Receipt Date: 20171117
  Transmission Date: 20180321
  Serious: Yes (Hospitalization)
  Sender: FDA-Public Use
  Company Number: US-JNJFOC-20171113196

PATIENT
  Age: 60 Year
  Sex: Female

DRUGS (2)
  1. INVOKANA [Suspect]
     Active Substance: CANAGLIFLOZIN
     Indication: TYPE 2 DIABETES MELLITUS
     Route: 048
  2. INSULIN [Concomitant]
     Active Substance: INSULIN NOS
     Indication: TYPE 2 DIABETES MELLITUS
     Route: 065

REACTIONS (7)
  - Urinary tract infection [Unknown]
  - Ear pain [Unknown]
  - Eye pain [Unknown]
  - Uterine infection [Unknown]
  - Polyp [Unknown]
  - Incorrect dose administered [Unknown]
  - Intestinal operation [Unknown]

NARRATIVE: CASE EVENT DATE: 20170215
